FAERS Safety Report 4994755-5 (Version None)
Quarter: 2006Q1

REPORT INFORMATION
  Report Type: 
  Country: None (occurrence: None)
  Receive Date: 20060313
  Receipt Date: 20050503
  Transmission Date: 20060701
  Serious: Yes (Other)
  Sender: FDA-Public Use
  Company Number: PHEH2005US04910

PATIENT
  Age: 44 Year
  Sex: Male
  Weight: 65.8 kg

DRUGS (4)
  1. TRILEPTAL [Suspect]
     Indication: EPILEPSY
     Dosage: 300 MG,BID,ORAL
     Route: 048
     Dates: start: 20040908
  2. TRILEPTAL [Suspect]
     Dates: start: 20050502
  3. DIOVAN [Concomitant]
  4. PAXIL [Concomitant]

REACTIONS (1)
  - HYPONATRAEMIA [None]
